FAERS Safety Report 22389044 (Version 1)
Quarter: 2023Q2

REPORT INFORMATION
  Report Type: Spontaneous
  Country: US (occurrence: US)
  Receive Date: 20230531
  Receipt Date: 20230531
  Transmission Date: 20230722
  Serious: No
  Sender: FDA-Public Use
  Company Number: MYC22-00570

PATIENT
  Age: 70 Year
  Sex: Female

DRUGS (2)
  1. VIVJOA [Suspect]
     Active Substance: OTESECONAZOLE
     Indication: Vulvovaginal mycotic infection
     Dosage: UNK
     Route: 048
     Dates: start: 20220925, end: 20221009
  2. PROPRANOLOL [Concomitant]
     Active Substance: PROPRANOLOL HYDROCHLORIDE
     Indication: Mitral valve prolapse
     Dosage: UNK
     Route: 065

REACTIONS (6)
  - Bladder spasm [Recovering/Resolving]
  - Polyuria [Recovering/Resolving]
  - Haematuria [Recovering/Resolving]
  - Insomnia [Recovering/Resolving]
  - Bladder pain [Recovering/Resolving]
  - Dysuria [Recovering/Resolving]

NARRATIVE: CASE EVENT DATE: 20220101
